FAERS Safety Report 6237723-8 (Version None)
Quarter: 2009Q2

REPORT INFORMATION
  Report Type: 
  Country: None (occurrence: None)
  Receive Date: 20090617
  Receipt Date: 20090603
  Transmission Date: 20091009
  Serious: Yes (Life-Threatening, Hospitalization, Other)
  Sender: FDA-Public Use
  Company Number: 2009AL003868

PATIENT
  Age: 88 Year
  Sex: Female

DRUGS (5)
  1. VERAPAMIL HYDROCHLORIDE [Suspect]
     Indication: BLOOD PRESSURE INCREASED
     Dosage: 160 MG; BID; PO
     Route: 048
     Dates: start: 19920101
  2. QUETIAPINE [Concomitant]
  3. GLICLAZIDE [Concomitant]
  4. LEVOTHYROXINE SODIUM [Concomitant]
  5. LOSARTAN POTASSIUM [Concomitant]

REACTIONS (3)
  - ATRIAL FIBRILLATION [None]
  - BRADYCARDIA [None]
  - LOSS OF CONSCIOUSNESS [None]
